FAERS Safety Report 15112033 (Version 3)
Quarter: 2018Q4

REPORT INFORMATION
  Report Type: Report from Study
  Country: IT (occurrence: IT)
  Receive Date: 20180705
  Receipt Date: 20181116
  Transmission Date: 20190204
  Serious: Yes (Other)
  Sender: FDA-Public Use
  Company Number: IT-TEVA-2018-IT-918489

PATIENT
  Age: 71 Year
  Sex: Female

DRUGS (7)
  1. PANTORC 20 MG COMPRESSE GASTRORESISTENTI [Concomitant]
     Active Substance: PANTOPRAZOLE SODIUM
     Route: 048
  2. LASIX [Concomitant]
     Active Substance: FUROSEMIDE
     Route: 048
  3. CONGESCOR 2,5 MG, COMPRESSE FILM-RIVESTITE [Concomitant]
     Route: 048
  4. LUVION 50 MG COMPRESSE [Concomitant]
     Route: 048
  5. TORVAST 40 MG COMPRESSE RIVESTITE CON FILM [Concomitant]
     Route: 048
  6. SUCRALFIN [Concomitant]
  7. LETROZOLO TEVA 2,5 MG COMPRESSE RIVESTITE CON FILM [Suspect]
     Active Substance: LETROZOLE
     Indication: BREAST CANCER
     Dosage: 1 DOSAGE FORMS DAILY;
     Route: 048

REACTIONS (4)
  - Arthralgia [Unknown]
  - Protein anabolism increased [Unknown]
  - Back pain [Unknown]
  - Weight increased [Unknown]

NARRATIVE: CASE EVENT DATE: 20170730
